FAERS Safety Report 14585413 (Version 1)
Quarter: 2018Q1

REPORT INFORMATION
  Report Type: Spontaneous
  Country: US (occurrence: US)
  Receive Date: 20180301
  Receipt Date: 20180301
  Transmission Date: 20180509
  Serious: No
  Sender: FDA-Public Use
  Company Number: US-JNJFOC-20180220825

PATIENT
  Age: 5 Decade
  Sex: Female
  Weight: 46.27 kg

DRUGS (2)
  1. TYLENOL 8 HR ARTHRITIS PAIN [Suspect]
     Active Substance: ACETAMINOPHEN
     Route: 065
  2. TYLENOL 8 HR ARTHRITIS PAIN [Suspect]
     Active Substance: ACETAMINOPHEN
     Indication: PAIN IN EXTREMITY
     Route: 065

REACTIONS (3)
  - Dizziness [Recovered/Resolved]
  - Headache [Recovered/Resolved]
  - Inappropriate schedule of drug administration [Unknown]
